FAERS Safety Report 8353333-0 (Version None)
Quarter: 2012Q2

REPORT INFORMATION
  Report Type: 
  Country: None (occurrence: None)
  Receive Date: 20120511
  Receipt Date: 20120508
  Transmission Date: 20120825
  Serious: Yes (Other)
  Sender: FDA-Public Use
  Company Number: PHHY2009CA28627

PATIENT
  Sex: Male

DRUGS (5)
  1. SANDOSTATIN LAR [Suspect]
     Indication: CARCINOID SYNDROME
     Dosage: 30 MG, EVERY 4 WEEKS
     Route: 030
     Dates: start: 20090609
  2. RADIOTHERAPY [Concomitant]
  3. ASPIRIN [Concomitant]
  4. SANDOSTATIN LAR [Suspect]
     Dosage: 30 MG, QMO
     Route: 030
  5. SANDOSTATIN LAR [Suspect]
     Dosage: 30 MG EVERY 4 WEEKS
     Route: 030

REACTIONS (34)
  - OROPHARYNGEAL PAIN [None]
  - DIZZINESS [None]
  - VISUAL IMPAIRMENT [None]
  - SCAB [None]
  - VERTIGO [None]
  - MUSCLE SPASMS [None]
  - OBSTRUCTION [None]
  - PRURITUS [None]
  - POOR PERIPHERAL CIRCULATION [None]
  - HIP FRACTURE [None]
  - ABDOMINAL PAIN [None]
  - NEOPLASM PROGRESSION [None]
  - COUGH [None]
  - DISORIENTATION [None]
  - ABDOMINAL DISCOMFORT [None]
  - HYPOAESTHESIA [None]
  - DIARRHOEA [None]
  - FALL [None]
  - CAROTID ARTERY OCCLUSION [None]
  - PERIPHERAL COLDNESS [None]
  - WEIGHT DECREASED [None]
  - PROCTALGIA [None]
  - NASOPHARYNGITIS [None]
  - OEDEMA PERIPHERAL [None]
  - ARTHRALGIA [None]
  - BALANCE DISORDER [None]
  - HEARING IMPAIRED [None]
  - PAIN IN EXTREMITY [None]
  - BLOOD PRESSURE INCREASED [None]
  - SKIN ULCER [None]
  - CELLULITIS [None]
  - ERYTHEMA [None]
  - PAIN [None]
  - RASH PRURITIC [None]
